FAERS Safety Report 17372009 (Version 2)
Quarter: 2021Q3

REPORT INFORMATION
  Report Type: Report from Study
  Country: FR (occurrence: FR)
  Receive Date: 20200205
  Receipt Date: 20210917
  Transmission Date: 20211014
  Serious: Yes (Hospitalization, Other)
  Sender: FDA-Public Use
  Company Number: FR-TAKEDA-2020TUS005837

PATIENT
  Sex: Female
  Weight: 57 kg

DRUGS (2)
  1. IXAZOMIB [Suspect]
     Active Substance: IXAZOMIB
     Indication: PLASMA CELL MYELOMA
     Dosage: 4 MILLIGRAM
     Route: 048
     Dates: start: 20180605, end: 20200923
  2. ISATUXIMAB [Suspect]
     Active Substance: ISATUXIMAB
     Indication: PLASMA CELL MYELOMA
     Dosage: UNK
     Route: 065
     Dates: start: 20180605, end: 20191116

REACTIONS (4)
  - Febrile bone marrow aplasia [Recovered/Resolved]
  - Pancytopenia [Recovering/Resolving]
  - Nausea [Recovering/Resolving]
  - Bowel movement irregularity [Recovering/Resolving]

NARRATIVE: CASE EVENT DATE: 20180926
